FAERS Safety Report 6952769-X (Version None)
Quarter: 2010Q3

REPORT INFORMATION
  Report Type: 
  Country: None (occurrence: None)
  Receive Date: 20100829
  Receipt Date: 20100514
  Transmission Date: 20110219
  Serious: No
  Sender: FDA-Public Use
  Company Number: US-ABBOTT-10P-163-0645612-00

PATIENT
  Sex: Male
  Weight: 117.13 kg

DRUGS (10)
  1. NIASPAN [Suspect]
     Indication: BLOOD TRIGLYCERIDES INCREASED
     Dates: start: 20100201, end: 20100419
  2. NIASPAN [Suspect]
     Dates: start: 20100419
  3. ASPIRIN [Concomitant]
     Indication: CORONARY ARTERIAL STENT INSERTION
  4. PLAVIX [Concomitant]
     Indication: CORONARY ARTERIAL STENT INSERTION
  5. LOVASA [Concomitant]
     Indication: SUPPLEMENTATION THERAPY
  6. TRICOR [Concomitant]
     Indication: BLOOD TRIGLYCERIDES INCREASED
  7. AMARYL [Concomitant]
     Indication: DIABETES MELLITUS
  8. VITAMIN D [Concomitant]
     Indication: VITAMIN SUPPLEMENTATION
  9. VITAMINS [Concomitant]
     Indication: VITAMIN SUPPLEMENTATION
  10. FOLIC ACID [Concomitant]
     Indication: PRODUCT USED FOR UNKNOWN INDICATION

REACTIONS (5)
  - BLOOD GLUCOSE INCREASED [None]
  - FATIGUE [None]
  - FLUSHING [None]
  - NIGHT SWEATS [None]
  - PARAESTHESIA [None]
